FAERS Safety Report 7994161-5 (Version None)
Quarter: 2011Q4

REPORT INFORMATION
  Report Type: 
  Country: None (occurrence: None)
  Receive Date: 20111220
  Receipt Date: 20111208
  Transmission Date: 20120403
  Serious: Yes (Other)
  Sender: FDA-Public Use
  Company Number: CA-JNJFOC-20111110909

PATIENT
  Sex: Female
  Weight: 123.9 kg

DRUGS (8)
  1. FERROUS SULFATE TAB [Concomitant]
  2. MOXIFLOXACIN [Concomitant]
     Route: 048
  3. SULFATRIM-DS [Concomitant]
     Route: 065
  4. REMICADE [Suspect]
     Indication: CROHN'S DISEASE
     Route: 042
     Dates: start: 20090421
  5. RAMIPRIL [Concomitant]
  6. REMICADE [Suspect]
     Route: 042
     Dates: start: 20090501
  7. MESALAMINE [Concomitant]
  8. METFORMIN HCL [Concomitant]
     Route: 065

REACTIONS (1)
  - DECUBITUS ULCER [None]
